FAERS Safety Report 6136038-6 (Version None)
Quarter: 2009Q1

REPORT INFORMATION
  Report Type: 
  Country: None (occurrence: None)
  Receive Date: 20090330
  Receipt Date: 20090326
  Transmission Date: 20090719
  Serious: Yes (Death)
  Sender: FDA-Public Use
  Company Number: TR-JNJFOC-20090304022

PATIENT
  Age: 65 Year
  Sex: Male
  Weight: 110 kg

DRUGS (6)
  1. DURAGESIC-100 [Suspect]
     Indication: PAIN
  2. CIPRALEX [Concomitant]
     Indication: ANXIETY
  3. DEXAMETHASONE [Concomitant]
     Indication: DYSPNOEA
  4. UNSPECIFIED DRUG [Concomitant]
     Indication: OBSTRUCTION
  5. CHEMOTHERAPY [Concomitant]
     Indication: LUNG ADENOCARCINOMA
  6. ACTIQ [Concomitant]
     Indication: PAIN

REACTIONS (2)
  - AGITATION [None]
  - LUNG ADENOCARCINOMA [None]
